FAERS Safety Report 7806580-8 (Version None)
Quarter: 2011Q4

REPORT INFORMATION
  Report Type: 
  Country: None (occurrence: None)
  Receive Date: 20111007
  Receipt Date: 20111007
  Transmission Date: 20120403
  Serious: No
  Sender: FDA-Public Use
  Company Number: None

PATIENT
  Sex: Female
  Weight: 92.1 kg

DRUGS (3)
  1. VINCRISTINE SULFATE [Suspect]
     Dosage: 8 MG
     Dates: end: 20110113
  2. METHOTREXATE [Suspect]
     Dosage: 830 MG
     Dates: end: 20110104
  3. ONCASPAR [Suspect]
     Dosage: 11000 IU
     Dates: end: 20110104

REACTIONS (3)
  - HYPERBILIRUBINAEMIA [None]
  - HYPERGLYCAEMIA [None]
  - HYPERTRIGLYCERIDAEMIA [None]
